FAERS Safety Report 13660534 (Version 1)
Quarter: 2017Q2

REPORT INFORMATION
  Report Type: Spontaneous
  Country: SE (occurrence: SE)
  Receive Date: 20170616
  Receipt Date: 20170616
  Transmission Date: 20170830
  Serious: Yes (Hospitalization, Other)
  Sender: FDA-Public Use
  Company Number: SE-G+W LABS-GW2017SE000169

PATIENT

DRUGS (4)
  1. CORTISONE [Concomitant]
     Active Substance: CORTISONE\HYDROCORTISONE
  2. METRONIDAZOLE. [Suspect]
     Active Substance: METRONIDAZOLE
     Indication: ANTIBIOTIC PROPHYLAXIS
     Dosage: 400 MG, TID
     Route: 065
  3. ANTIHYPERTENSIVES [Concomitant]
     Active Substance: UNSPECIFIED INGREDIENT
  4. INSULIN [Concomitant]
     Active Substance: INSULIN NOS

REACTIONS (3)
  - Myocardial infarction [Unknown]
  - Renal impairment [Unknown]
  - Toxic encephalopathy [Recovered/Resolved]
